FAERS Safety Report 6048129-9 (Version None)
Quarter: 2009Q1

REPORT INFORMATION
  Report Type: 
  Country: None (occurrence: None)
  Receive Date: 20090123
  Receipt Date: 20090115
  Transmission Date: 20090719
  Serious: Yes (Disabling)
  Sender: FDA-Public Use
  Company Number: CA-ASTRAZENECA-2009UW01467

PATIENT
  Age: 59 Year
  Sex: Female
  Weight: 59 kg

DRUGS (1)
  1. NEXIUM [Suspect]
     Route: 048

REACTIONS (6)
  - ARTHRALGIA [None]
  - ASTHENIA [None]
  - EOSINOPHILIC FASCIITIS [None]
  - ERYTHEMA [None]
  - OEDEMA PERIPHERAL [None]
  - PAIN [None]
